FAERS Safety Report 22082292 (Version 1)
Quarter: 2023Q1

REPORT INFORMATION
  Report Type: Spontaneous
  Country: SE (occurrence: SE)
  Receive Date: 20230310
  Receipt Date: 20230310
  Transmission Date: 20230417
  Serious: Yes (Hospitalization)
  Sender: FDA-Public Use
  Company Number: None

PATIENT
  Age: 35 Year
  Sex: Female

DRUGS (3)
  1. QUETIAPINE [Suspect]
     Active Substance: QUETIAPINE
     Indication: Product used for unknown indication
     Dosage: 1500 MG, (TOTAL), (60 TABL QUETIAPINE 25 MG)
     Route: 048
     Dates: start: 20191001, end: 20191001
  2. VENLAFAXINE [Suspect]
     Active Substance: VENLAFAXINE HYDROCHLORIDE
     Indication: Product used for unknown indication
     Dosage: 11250 MG, (TOTAL), (75 TABL VENLAFAXINE 150 MG)
     Route: 048
     Dates: start: 20191001, end: 20191001
  3. VENLAFAXINE [Suspect]
     Active Substance: VENLAFAXINE HYDROCHLORIDE
     Dosage: 7875 MG, (TOTAL), (105 TABL VENLAFAXINE 75 MG)
     Route: 048
     Dates: start: 20191001, end: 20191001

REACTIONS (5)
  - Intentional self-injury [Unknown]
  - Electrocardiogram QRS complex shortened [Unknown]
  - Unresponsive to stimuli [Unknown]
  - Tachycardia [Unknown]
  - Intentional overdose [Unknown]

NARRATIVE: CASE EVENT DATE: 20191001
